FAERS Safety Report 17064348 (Version 5)
Quarter: 2020Q1

REPORT INFORMATION
  Report Type: Spontaneous
  Country: RO (occurrence: RO)
  Receive Date: 20191122
  Receipt Date: 20200130
  Transmission Date: 20200409
  Serious: Yes (Hospitalization, Other)
  Sender: FDA-Public Use
  Company Number: RO-PFIZER INC-2019502022

PATIENT
  Age: 64 Year
  Sex: Male
  Weight: 90 kg

DRUGS (3)
  1. NORVASC [Concomitant]
     Active Substance: AMLODIPINE BESYLATE
     Dosage: UNK
  2. INLYTA [Suspect]
     Active Substance: AXITINIB
     Indication: METASTATIC RENAL CELL CARCINOMA
     Dosage: 5 MG, UNK (CONTINUOUSLY)
     Route: 048
     Dates: start: 20171007, end: 20191029
  3. TRITACE [Concomitant]
     Active Substance: RAMIPRIL
     Dosage: UNK

REACTIONS (11)
  - Thrombocytopenia [Recovered/Resolved]
  - Ventricular failure [Recovered/Resolved]
  - Pulmonary embolism [Recovered/Resolved]
  - Retroperitoneal lymphadenopathy [Recovered/Resolved]
  - Nephropathy [Recovered/Resolved]
  - Ischaemic cardiomyopathy [Recovered/Resolved]
  - Hypertension [Recovered/Resolved]
  - Acute coronary syndrome [Recovered/Resolved]
  - Transaminases increased [Recovered/Resolved]
  - Mitral valve incompetence [Recovered/Resolved]
  - Renal injury [Recovered/Resolved]

NARRATIVE: CASE EVENT DATE: 20191029
